FAERS Safety Report 19863773 (Version 1)
Quarter: 2021Q3

REPORT INFORMATION
  Report Type: Spontaneous
  Country: TW (occurrence: TW)
  Receive Date: 20210922
  Receipt Date: 20210922
  Transmission Date: 20211014
  Serious: Yes (Hospitalization)
  Sender: FDA-Public Use
  Company Number: TW-SUPERNUS PHARMACEUTICALS, INC.-SUP202109-001879

PATIENT
  Age: 28 Year
  Sex: Female

DRUGS (7)
  1. FLUOXETINE [Suspect]
     Active Substance: FLUOXETINE HYDROCHLORIDE
     Indication: OBESITY
     Dosage: NOT PROVIDED
  2. METFORMIN [Suspect]
     Active Substance: METFORMIN HYDROCHLORIDE
     Indication: OBESITY
     Dosage: NOT PROVIDED
  3. TRIIODOTHYRONINE [Suspect]
     Active Substance: LIOTHYRONINE SODIUM
     Indication: OBESITY
     Dosage: NOT PROVIDED
  4. PSEUDOEPHEDRINE. [Suspect]
     Active Substance: PSEUDOEPHEDRINE HYDROCHLORIDE
     Indication: OBESITY
     Dosage: NOT PROVIDED
  5. HYDROCHLOROTHIAZIDE. [Suspect]
     Active Substance: HYDROCHLOROTHIAZIDE
     Indication: OBESITY
     Dosage: NOT PROVIDED
  6. TOPIRAMATE. [Suspect]
     Active Substance: TOPIRAMATE
     Indication: OBESITY
     Dosage: NOT PROVIDED
  7. OXAZOLAM [Suspect]
     Active Substance: OXAZOLAM
     Indication: OBESITY
     Dosage: NOT PROVIDED

REACTIONS (5)
  - Short-chain acyl-coenzyme A dehydrogenase deficiency [Recovered/Resolved]
  - Medium-chain acyl-coenzyme A dehydrogenase deficiency [Recovered/Resolved]
  - Long-chain acyl-coenzyme A dehydrogenase deficiency [Recovered/Resolved]
  - Condition aggravated [Recovered/Resolved]
  - Product use in unapproved indication [Unknown]
